FAERS Safety Report 11700451 (Version 2)
Quarter: 2015Q4

REPORT INFORMATION
  Report Type: Spontaneous
  Country: FR (occurrence: FR)
  Receive Date: 20151105
  Receipt Date: 20151105
  Transmission Date: 20160304
  Serious: Yes (Life-Threatening, Hospitalization)
  Sender: FDA-Public Use
  Company Number: PHHY2015FR144282

PATIENT
  Age: 48 Year
  Sex: Female

DRUGS (2)
  1. VOLTARENE [Suspect]
     Active Substance: DICLOFENAC SODIUM
     Indication: PRODUCT USED FOR UNKNOWN INDICATION
     Dosage: 1 G, ONCE/SINGLE
     Route: 048
     Dates: start: 20100403, end: 20100403
  2. PARACETAMOL [Suspect]
     Active Substance: ACETAMINOPHEN
     Indication: PRODUCT USED FOR UNKNOWN INDICATION
     Dosage: 24 G, ONCE/SINGLE
     Route: 048
     Dates: start: 20100404, end: 20100404

REACTIONS (4)
  - Acute hepatic failure [Recovered/Resolved with Sequelae]
  - Hepatocellular injury [Recovered/Resolved with Sequelae]
  - Liver transplant [Recovered/Resolved]
  - Renal failure [Recovered/Resolved]

NARRATIVE: CASE EVENT DATE: 20100405
